FAERS Safety Report 8872222 (Version 2)
Quarter: 2012Q4

REPORT INFORMATION
  Report Type: 
  Country: FR (occurrence: FR)
  Receive Date: 20121029
  Receipt Date: 20121203
  Transmission Date: 20130627
  Serious: Yes (Other)
  Sender: FDA-Public Use
  Company Number: FR-BAYER-2012-113222

PATIENT
  Age: 15 Year
  Sex: Male

DRUGS (2)
  1. KOGENATE BAYER [Suspect]
     Indication: PROPHYLACTIC
     Dosage: UNK
  2. KOGENATE BAYER [Suspect]
     Indication: HEMOPHILIA A

REACTIONS (1)
  - Hepatitis B virus test positive [None]
